FAERS Safety Report 8681593 (Version 3)
Quarter: 2013Q2

REPORT INFORMATION
  Report Type: Report from Study
  Country: US (occurrence: US)
  Receive Date: 20120725
  Receipt Date: 20130614
  Transmission Date: 20140414
  Serious: Yes (Hospitalization)
  Sender: FDA-Public Use
  Company Number: PHHO2012US010825

PATIENT
  Age: 66 Year
  Sex: Male
  Weight: 106 kg

DRUGS (4)
  1. ACZ885 [Suspect]
     Indication: GOUTY ARTHRITIS
     Dosage: UNK
     Route: 058
     Dates: start: 20120622
  2. AMLODIPINE [Concomitant]
     Indication: HYPERTENSION
     Dosage: 10 MG, QD
     Dates: start: 1997
  3. LISINOPRIL [Concomitant]
     Indication: HYPERTENSION
     Dosage: 20 MG, QD
     Dates: start: 2007
  4. GLYBURIDE [Concomitant]
     Indication: DIABETES MELLITUS
     Dosage: 2.5 MG, QD
     Dates: start: 2002

REACTIONS (1)
  - Cellulitis [Recovering/Resolving]
